FAERS Safety Report 13462644 (Version 4)
Quarter: 2020Q3

REPORT INFORMATION
  Report Type: Report from Study
  Country: US (occurrence: US)
  Receive Date: 20170420
  Receipt Date: 20200721
  Transmission Date: 20201102
  Serious: Yes (Hospitalization, Disabling)
  Sender: FDA-Public Use
  Company Number: US-SA-2017SA052455

PATIENT

DRUGS (5)
  1. ALEMTUZUMAB [Suspect]
     Active Substance: ALEMTUZUMAB
     Indication: MULTIPLE SCLEROSIS
     Dosage: 12 MG,QD
     Route: 041
     Dates: start: 20170227, end: 20170303
  2. GLICLAZIDE [Concomitant]
     Active Substance: GLICLAZIDE
     Indication: HYPERSENSITIVITY
     Dosage: UNK UNK,QD
     Route: 065
     Dates: start: 20170227
  3. ZANTAC [Concomitant]
     Active Substance: RANITIDINE HYDROCHLORIDE
     Indication: DYSPEPSIA
     Dosage: UNK UNK,BID
     Route: 065
     Dates: start: 20170227
  4. VALACICLOVIR [Concomitant]
     Active Substance: VALACYCLOVIR HYDROCHLORIDE
     Indication: INFECTION PROPHYLAXIS
     Dosage: UNK UNK,QD
     Route: 065
  5. NIFEDICAL XL [Concomitant]
     Active Substance: NIFEDIPINE
     Indication: HYPERTENSION
     Dosage: UNK UNK,QD
     Route: 065
     Dates: start: 201701

REACTIONS (5)
  - Memory impairment [Not Recovered/Not Resolved]
  - Speech disorder [Unknown]
  - Bacterial infection [Unknown]
  - Gait inability [Recovered/Resolved]
  - Pyrexia [Recovered/Resolved]

NARRATIVE: CASE EVENT DATE: 2017
